FAERS Safety Report 12992641 (Version 1)
Quarter: 2016Q4

REPORT INFORMATION
  Report Type: Spontaneous
  Country: US (occurrence: US)
  Receive Date: 20161202
  Receipt Date: 20161202
  Transmission Date: 20170207
  Serious: Yes (Other)
  Sender: FDA-Public Use
  Company Number: US-TAKEDA-2016TUS021608

PATIENT
  Sex: Female
  Weight: 36.28 kg

DRUGS (2)
  1. PREVACID [Suspect]
     Active Substance: LANSOPRAZOLE
     Indication: GASTROOESOPHAGEAL REFLUX DISEASE
     Dosage: UNK
     Route: 065
  2. PREVACID SOLUTAB [Suspect]
     Active Substance: LANSOPRAZOLE
     Indication: GASTROOESOPHAGEAL REFLUX DISEASE
     Dosage: UNK, QD
     Route: 048

REACTIONS (7)
  - Dysphagia [Unknown]
  - Body height abnormal [Unknown]
  - Speech disorder [Unknown]
  - Pharyngeal oedema [Unknown]
  - Condition aggravated [Unknown]
  - Tongue movement disturbance [Unknown]
  - Swollen tongue [Unknown]
